FAERS Safety Report 6239183-X (Version None)
Quarter: 2009Q2

REPORT INFORMATION
  Report Type: 
  Country: None (occurrence: None)
  Receive Date: 20090618
  Receipt Date: 20090618
  Transmission Date: 20091009
  Serious: Yes (Disabling)
  Sender: FDA-Public Use
  Company Number: None

PATIENT
  Sex: Male
  Weight: 81.6475 kg

DRUGS (1)
  1. ZICAM SWABS [Suspect]
     Indication: NASOPHARYNGITIS
     Dosage: 3 OR 4 DAILY 1 WEEK PERMA
     Dates: start: 20050701, end: 20070430

REACTIONS (2)
  - NASAL DISCOMFORT [None]
  - PAROSMIA [None]
